FAERS Safety Report 16701496 (Version 7)
Quarter: 2020Q1

REPORT INFORMATION
  Report Type: Report from Study
  Country: US (occurrence: US)
  Receive Date: 20190814
  Receipt Date: 20200210
  Transmission Date: 20200409
  Serious: Yes (Hospitalization, Other)
  Sender: FDA-Public Use
  Company Number: US-GILEAD-2019-0419639

PATIENT
  Age: 76 Year
  Sex: Female

DRUGS (5)
  1. TRACLEER [Concomitant]
     Active Substance: BOSENTAN
  2. AMBRISENTAN [Suspect]
     Active Substance: AMBRISENTAN
     Indication: PULMONARY HYPERTENSION
     Dosage: 10 MG, QD
     Route: 048
     Dates: start: 20161013
  3. ADEMPAS [Concomitant]
     Active Substance: RIOCIGUAT
  4. AMBRISENTAN [Suspect]
     Active Substance: AMBRISENTAN
     Indication: MIXED CONNECTIVE TISSUE DISEASE
  5. UPTRAVI [Concomitant]
     Active Substance: SELEXIPAG

REACTIONS (14)
  - Decreased appetite [Not Recovered/Not Resolved]
  - Feeling abnormal [Not Recovered/Not Resolved]
  - Renal failure [Unknown]
  - Fluid retention [Unknown]
  - Feeling abnormal [Unknown]
  - Oedema peripheral [Not Recovered/Not Resolved]
  - Urinary tract infection [Recovered/Resolved]
  - Cardiac failure congestive [Unknown]
  - Joint swelling [Unknown]
  - Weight decreased [Unknown]
  - Urinary tract infection [Unknown]
  - Fatigue [Not Recovered/Not Resolved]
  - Oedema peripheral [Recovered/Resolved]
  - Sinus disorder [Unknown]

NARRATIVE: CASE EVENT DATE: 201908
